FAERS Safety Report 5179481-4 (Version None)
Quarter: 2006Q4

REPORT INFORMATION
  Report Type: 
  Country: None (occurrence: None)
  Receive Date: 20061219
  Receipt Date: 20061208
  Transmission Date: 20070319
  Serious: Yes (Other)
  Sender: FDA-Public Use
  Company Number: US-ELI_LILLY_AND_COMPANY-US200612001442

PATIENT
  Age: 75 Year
  Sex: Female

DRUGS (1)
  1. HUMULIN N [Suspect]
     Indication: DIABETES MELLITUS
     Dosage: UNK, UNKNOWN
     Dates: start: 19950101

REACTIONS (9)
  - HYPOACUSIS [None]
  - LIVER DISORDER [None]
  - LIVER OPERATION [None]
  - NASOPHARYNGITIS [None]
  - PHARMACEUTICAL PRODUCT COMPLAINT [None]
  - SKIN CANCER [None]
  - STRESS [None]
  - VASCULAR BYPASS GRAFT [None]
  - VISUAL ACUITY REDUCED [None]
